FAERS Safety Report 7113512-7 (Version None)
Quarter: 2010Q4

REPORT INFORMATION
  Report Type: 
  Country: None (occurrence: None)
  Receive Date: 20101119
  Receipt Date: 20101104
  Transmission Date: 20110411
  Serious: No
  Sender: FDA-Public Use
  Company Number: US-PFIZER INC-2010142446

PATIENT
  Sex: Female
  Weight: 57.596 kg

DRUGS (8)
  1. PRISTIQ [Suspect]
     Indication: DEPRESSION
     Dosage: 100 MG, 1X/DAY
     Route: 048
     Dates: start: 20100101
  2. ASENAPINE [Concomitant]
     Indication: PSYCHOTIC DISORDER
     Dosage: UNK
  3. SYNTHROID [Concomitant]
     Indication: HYPOTHYROIDISM
     Dosage: 125 UG, 1X/DAY
     Route: 048
  4. RASAGILINE [Concomitant]
     Dosage: UNK
  5. SINEMET [Concomitant]
     Indication: GAIT DISTURBANCE
     Dosage: UNK
  6. REQUIP [Concomitant]
     Indication: RESTLESS LEGS SYNDROME
     Dosage: 3 MG, 1X/DAY
     Route: 048
  7. DARIFENACIN [Concomitant]
     Dosage: UNK
  8. HYDROCHLOROTHIAZIDE [Concomitant]
     Indication: OEDEMA PERIPHERAL
     Dosage: UNK

REACTIONS (1)
  - INSOMNIA [None]
